FAERS Safety Report 11104952 (Version 2)
Quarter: 2015Q2

REPORT INFORMATION
  Report Type: Spontaneous
  Country: US (occurrence: US)
  Receive Date: 20150511
  Receipt Date: 20150603
  Transmission Date: 20150821
  Serious: Yes (Other)
  Sender: FDA-Public Use
  Company Number: US-CELGENEUS-USA-2015046834

PATIENT
  Sex: Female
  Weight: 54.03 kg

DRUGS (7)
  1. DEXAMETHASONE. [Concomitant]
     Active Substance: DEXAMETHASONE
     Indication: PLASMA CELL MYELOMA
     Route: 048
     Dates: start: 20141103
  2. PROCRIT [Concomitant]
     Active Substance: ERYTHROPOIETIN
     Indication: IRON DEFICIENCY ANAEMIA
     Dosage: 10,000 UNITS
     Route: 058
     Dates: start: 20141103
  3. OMEPRAZOLE. [Concomitant]
     Active Substance: OMEPRAZOLE
     Indication: GASTROOESOPHAGEAL REFLUX DISEASE
     Route: 048
     Dates: start: 20141103
  4. CALCIUM ACETATE. [Concomitant]
     Active Substance: CALCIUM ACETATE
     Indication: PRODUCT USED FOR UNKNOWN INDICATION
     Route: 048
     Dates: start: 20141103
  5. ONDANSETRON [Concomitant]
     Active Substance: ONDANSETRON
     Indication: PLASMA CELL MYELOMA
     Route: 048
     Dates: start: 20141103
  6. METOCLOPRAMIDE. [Concomitant]
     Active Substance: METOCLOPRAMIDE
     Indication: PROPHYLAXIS OF NAUSEA AND VOMITING
     Dosage: 1-2 TABS
     Route: 048
     Dates: start: 20141103
  7. THALOMID [Suspect]
     Active Substance: THALIDOMIDE
     Indication: PLASMA CELL MYELOMA
     Dosage: 100 MILLIGRAM
     Route: 048
     Dates: start: 20141105

REACTIONS (1)
  - Hypersensitivity [Recovered/Resolved]
